FAERS Safety Report 14345005 (Version 1)
Quarter: 2018Q1

REPORT INFORMATION
  Report Type: Report from Study
  Country: IN (occurrence: IN)
  Receive Date: 20180103
  Receipt Date: 20180103
  Transmission Date: 20180509
  Serious: Yes (Other)
  Sender: FDA-Public Use
  Company Number: IN-ROCHE-2048772

PATIENT

DRUGS (1)
  1. RITUXIMAB. [Suspect]
     Active Substance: RITUXIMAB
     Indication: PEMPHIGUS
     Route: 042

REACTIONS (12)
  - Pleural effusion [Unknown]
  - Tinea infection [Unknown]
  - Urticaria [Unknown]
  - Hypotension [Unknown]
  - Pneumonia bacterial [Unknown]
  - Tuberculosis [Unknown]
  - Face oedema [Unknown]
  - Pyrexia [Unknown]
  - Diarrhoea [Unknown]
  - Hypertension [Unknown]
  - Herpes zoster [Unknown]
  - Pulmonary embolism [Unknown]
